FAERS Safety Report 24254839 (Version 3)
Quarter: 2025Q1

REPORT INFORMATION
  Report Type: Spontaneous
  Country: US (occurrence: US)
  Receive Date: 20240827
  Receipt Date: 20250107
  Transmission Date: 20250409
  Serious: Yes (Other)
  Sender: JOHNSON AND JOHNSON
  Company Number: US-JNJFOC-20240865575

PATIENT
  Age: 47 Year
  Sex: Female
  Weight: 53.98 kg

DRUGS (1)
  1. TECVAYLI [Suspect]
     Active Substance: TECLISTAMAB-CQYV
     Indication: Plasma cell myeloma
     Route: 058
     Dates: start: 20240617, end: 20240924

REACTIONS (2)
  - Pneumonitis [Not Recovered/Not Resolved]
  - Pneumonia [Not Recovered/Not Resolved]
